FAERS Safety Report 6106323-2 (Version None)
Quarter: 2009Q1

REPORT INFORMATION
  Report Type: 
  Country: None (occurrence: None)
  Receive Date: 20090306
  Receipt Date: 20090225
  Transmission Date: 20090719
  Serious: Yes (Hospitalization)
  Sender: FDA-Public Use
  Company Number: PHHY2009JP06882

PATIENT
  Age: 29 Year
  Sex: Male

DRUGS (3)
  1. TEGRETOL [Suspect]
     Indication: EPILEPSY
  2. PHENYTOIN [Concomitant]
     Indication: EPILEPSY
  3. VALPROATE SODIUM [Concomitant]
     Indication: EPILEPSY

REACTIONS (3)
  - FULL BLOOD COUNT DECREASED [None]
  - SINUS BRADYCARDIA [None]
  - STATUS EPILEPTICUS [None]
